FAERS Safety Report 5944203-3 (Version None)
Quarter: 2008Q4

REPORT INFORMATION
  Report Type: 
  Country: None (occurrence: None)
  Receive Date: 20081106
  Receipt Date: 20081029
  Transmission Date: 20090506
  Serious: Yes (Hospitalization)
  Sender: FDA-Public Use
  Company Number: JP-MERCK-0802USA05505

PATIENT
  Age: 8 Day
  Sex: Female

DRUGS (1)
  1. DECADRON [Suspect]
     Indication: ATRIOVENTRICULAR BLOCK COMPLETE
     Route: 048

REACTIONS (3)
  - ADRENAL INSUFFICIENCY [None]
  - CARDIOMEGALY [None]
  - TRICUSPID VALVE INCOMPETENCE [None]
